FAERS Safety Report 13800759 (Version 1)
Quarter: 2017Q3

REPORT INFORMATION
  Report Type: Report from Study
  Country: ZA (occurrence: ZA)
  Receive Date: 20170727
  Receipt Date: 20170727
  Transmission Date: 20171127
  Serious: Yes (Death, Other)
  Sender: FDA-Public Use
  Company Number: ZA-AMGEN-ZAFSL2017112579

PATIENT
  Age: 76 Year

DRUGS (1)
  1. ARANESP [Suspect]
     Active Substance: DARBEPOETIN ALFA
     Indication: CHRONIC KIDNEY DISEASE
     Dosage: 40 MUG, QMO
     Route: 058
     Dates: start: 201507, end: 20170315

REACTIONS (1)
  - Death [Fatal]

NARRATIVE: CASE EVENT DATE: 20170314
